FAERS Safety Report 8635494 (Version 3)
Quarter: 2012Q4

REPORT INFORMATION
  Report Type: Spontaneous
  Country: None (occurrence: None)
  Receive Date: 20120613
  Receipt Date: 20121018
  Transmission Date: 20130627
  Serious: Yes (Hospitalization)
  Sender: FDA-Public Use
  Company Number: AUR-APL-2012-02568

PATIENT
  Age: 76 Year
  Sex: Male

DRUGS (5)
  1. SIMVASTATIN [Suspect]
     Indication: HYPERCHOLESTEROLAEMIA
     Route: 048
  2. DICLOFENAC SODIUM [Suspect]
     Indication: OSTEOARTHRITIS
     Route: 048
  3. CINNARIZINE (CINNARIZINE) [Concomitant]
  4. GLUCOSAMINE (GLUCOSAMINE) [Concomitant]
  5. SILDENAFIL CITRATE [Concomitant]

REACTIONS (2)
  - Renal failure acute [None]
  - Rhabdomyolysis [None]
